FAERS Safety Report 5889099-3 (Version None)
Quarter: 2008Q3

REPORT INFORMATION
  Report Type: 
  Country: None (occurrence: None)
  Receive Date: 20080919
  Receipt Date: 20080511
  Transmission Date: 20090109
  Serious: No
  Sender: FDA-Public Use
  Company Number: US-BAYER-200822860NA

PATIENT
  Age: 25 Year
  Sex: Female

DRUGS (1)
  1. AVELOX [Suspect]
     Indication: RESPIRATORY TRACT INFECTION
     Dosage: TOTAL DAILY DOSE: 400 MG  UNIT DOSE: 400 MG
     Route: 048
     Dates: start: 20080505, end: 20080505

REACTIONS (7)
  - DIZZINESS [None]
  - HYPERVENTILATION [None]
  - HYPOAESTHESIA [None]
  - OXYGEN SATURATION DECREASED [None]
  - PANIC ATTACK [None]
  - PARANOIA [None]
  - SENSORY LOSS [None]
